FAERS Safety Report 8885024 (Version 2)
Quarter: 2013Q2

REPORT INFORMATION
  Report Type: Spontaneous
  Country: CZ (occurrence: CZ)
  Receive Date: 20121105
  Receipt Date: 20130418
  Transmission Date: 20140414
  Serious: Yes (Hospitalization)
  Sender: FDA-Public Use
  Company Number: CZ-BIOGENIDEC-2012BI048342

PATIENT
  Age: 47 Year
  Sex: Female
  Weight: 53 kg

DRUGS (7)
  1. AVONEX [Suspect]
     Indication: MULTIPLE SCLEROSIS
     Route: 030
     Dates: start: 201104, end: 20121030
  2. METHYLPREDNISOLONE [Concomitant]
     Indication: MULTIPLE SCLEROSIS
     Route: 048
     Dates: start: 201104
  3. CALCIUM [Concomitant]
     Indication: OSTEOPOROSIS
     Route: 048
     Dates: start: 201107
  4. OMEPRAZOLE [Concomitant]
     Indication: PROPHYLAXIS
     Route: 048
     Dates: start: 201104
  5. TRAZODONE [Concomitant]
     Indication: DEPRESSION
     Route: 048
     Dates: start: 201203
  6. MIRTAZAPINE [Concomitant]
  7. VENLAFAXINE [Concomitant]

REACTIONS (2)
  - Depression [Unknown]
  - Drug-induced liver injury [Recovered/Resolved]
